FAERS Safety Report 17765334 (Version 1)
Quarter: 2020Q2

REPORT INFORMATION
  Report Type: Spontaneous
  Country: US (occurrence: US)
  Receive Date: 20200511
  Receipt Date: 20200511
  Transmission Date: 20200714
  Serious: No
  Sender: FDA-Public Use
  Company Number: US-PFIZER INC-2020185235

PATIENT
  Age: 75 Year
  Sex: Female
  Weight: 47.63 kg

DRUGS (1)
  1. REVATIO [Suspect]
     Active Substance: SILDENAFIL CITRATE
     Indication: DYSPNOEA
     Dosage: 1 DF, 3X/DAY (ONE TABLET, THREE TIMES DAILY, BY MOUTH)
     Route: 048
     Dates: start: 2010

REACTIONS (7)
  - Product use in unapproved indication [Unknown]
  - Cardiac disorder [Unknown]
  - Hypoaesthesia [Unknown]
  - Immune system disorder [Unknown]
  - Lung disorder [Unknown]
  - Oedema peripheral [Unknown]
  - Off label use [Unknown]
